FAERS Safety Report 5404633-5 (Version None)
Quarter: 2007Q3

REPORT INFORMATION
  Report Type: 
  Country: None (occurrence: None)
  Receive Date: 20070802
  Receipt Date: 20070726
  Transmission Date: 20080115
  Serious: Yes (Death)
  Sender: FDA-Public Use
  Company Number: NL-MERCK-0707USA04720

PATIENT
  Age: 57 Year

DRUGS (5)
  1. DECADRON [Suspect]
     Indication: ACUTE LYMPHOCYTIC LEUKAEMIA
     Route: 048
  2. ONCOVIN [Concomitant]
     Route: 042
  3. ADRIAMYCIN RDF [Concomitant]
     Route: 042
  4. METHOTREXATE [Suspect]
     Indication: ACUTE LYMPHOCYTIC LEUKAEMIA
     Route: 042
  5. METHOTREXATE [Suspect]
     Route: 048

REACTIONS (1)
  - CACHEXIA [None]
